FAERS Safety Report 21820618 (Version 1)
Quarter: 2023Q1

REPORT INFORMATION
  Report Type: Other
  Country: US (occurrence: None)
  Receive Date: 20230105
  Receipt Date: 20230105
  Transmission Date: 20230418
  Serious: Yes (Hospitalization)
  Sender: FDA-Public Use
  Company Number: US-ROCHE-3256011

PATIENT
  Age: 65 Year
  Sex: Male
  Weight: 83.990 kg

DRUGS (6)
  1. OCREVUS [Suspect]
     Active Substance: OCRELIZUMAB
     Indication: Relapsing-remitting multiple sclerosis
     Dosage: 300 MG ON DAY 1 AND DAY 15
     Route: 042
     Dates: start: 2021
  2. TESTOSTERONE [Concomitant]
     Active Substance: TESTOSTERONE
  3. LISINOPRIL [Concomitant]
     Active Substance: LISINOPRIL
  4. ATORVASTATIN [Concomitant]
     Active Substance: ATORVASTATIN
  5. METOPROLOL [Concomitant]
     Active Substance: METOPROLOL
  6. ASPIRIN [Concomitant]
     Active Substance: ASPIRIN

REACTIONS (6)
  - COVID-19 [Recovered/Resolved]
  - Myocardial infarction [Recovered/Resolved]
  - Blood cholesterol increased [Not Recovered/Not Resolved]
  - Weight decreased [Recovering/Resolving]
  - Muscle atrophy [Recovering/Resolving]
  - Heart rate decreased [Not Recovered/Not Resolved]
